FAERS Safety Report 23673783 (Version 1)
Quarter: 2024Q1

REPORT INFORMATION
  Report Type: Spontaneous
  Country: US (occurrence: None)
  Receive Date: 20240326
  Receipt Date: 20240326
  Transmission Date: 20240410
  Serious: Yes (Hospitalization)
  Sender: FDA-Public Use
  Company Number: None

PATIENT
  Age: 75 Year
  Sex: Male
  Weight: 94 kg

DRUGS (4)
  1. DARATUMUMAB\HYALURONIDASE-FIHJ [Suspect]
     Active Substance: DARATUMUMAB\HYALURONIDASE-FIHJ
     Dates: end: 20240311
  2. DEXAMETHASONE [Suspect]
     Active Substance: DEXAMETHASONE
     Dates: end: 20240318
  3. LENALIDOMIDE [Suspect]
     Active Substance: LENALIDOMIDE
     Dates: end: 20240318
  4. BORTEZOMIB [Suspect]
     Active Substance: BORTEZOMIB
     Dates: end: 20240318

REACTIONS (2)
  - Basal cell carcinoma [None]
  - Nasal cavity cancer [None]

NARRATIVE: CASE EVENT DATE: 20240314
